FAERS Safety Report 16198102 (Version 2)
Quarter: 2019Q2

REPORT INFORMATION
  Report Type: Spontaneous
  Country: FR (occurrence: FR)
  Receive Date: 20190415
  Receipt Date: 20190418
  Transmission Date: 20190711
  Serious: Yes (Hospitalization)
  Sender: FDA-Public Use
  Company Number: FR-MYLANLABS-2019M1034424

PATIENT
  Age: 73 Year
  Sex: Female
  Weight: 80 kg

DRUGS (5)
  1. AMLODIPINE [Interacting]
     Active Substance: AMLODIPINE BESYLATE
     Indication: HYPERTENSION
     Dosage: 10 MILLIGRAM, QD
     Route: 048
     Dates: start: 20181008
  2. HYDROCHLOROTHIAZIDE. [Interacting]
     Active Substance: HYDROCHLOROTHIAZIDE
     Indication: HYPERTENSION
     Dosage: CF COMMENTAIRES
     Route: 048
     Dates: start: 20181009, end: 20181012
  3. ATENOLOL. [Suspect]
     Active Substance: ATENOLOL
     Indication: ATRIAL FIBRILLATION
     Dosage: 25 MILLIGRAM, QD
     Route: 048
     Dates: start: 20181008, end: 20181012
  4. IRBESARTAN. [Interacting]
     Active Substance: IRBESARTAN
     Indication: HYPERTENSION
     Dosage: CF COMMENTAIRES
     Route: 048
     Dates: start: 20181009, end: 20181012
  5. FLECAINE [Interacting]
     Active Substance: FLECAINIDE
     Indication: ATRIAL FIBRILLATION
     Dosage: CF COMMENTAIRES
     Route: 048

REACTIONS (6)
  - Bradycardia [Recovered/Resolved]
  - Drug interaction [Unknown]
  - Acute kidney injury [Recovering/Resolving]
  - Malaise [Recovered/Resolved]
  - Hyperkalaemia [Recovered/Resolved]
  - Hypotension [Recovered/Resolved]

NARRATIVE: CASE EVENT DATE: 20181012
